FAERS Safety Report 14699752 (Version 1)
Quarter: 2018Q1

REPORT INFORMATION
  Report Type: Spontaneous
  Country: US (occurrence: US)
  Receive Date: 20180329
  Receipt Date: 20180329
  Transmission Date: 20180509
  Serious: Yes (Disabling, Other)
  Sender: FDA-Public Use
  Company Number: None

PATIENT
  Age: 33 Year
  Sex: Female
  Weight: 86.4 kg

DRUGS (9)
  1. CLONIDINE. [Concomitant]
     Active Substance: CLONIDINE
  2. VITAMIN D3 [Concomitant]
     Active Substance: CHOLECALCIFEROL
  3. CALCIUM [Concomitant]
     Active Substance: CALCIUM
  4. GLATIRAMER ACETATE. [Suspect]
     Active Substance: GLATIRAMER ACETATE
     Indication: MULTIPLE SCLEROSIS
     Dosage: ?          QUANTITY:12 INJECTION(S);OTHER FREQUENCY:3 TIMES A WEEK;?
     Route: 058
  5. MODAFINIL. [Concomitant]
     Active Substance: MODAFINIL
  6. RANITIDINE. [Concomitant]
     Active Substance: RANITIDINE
  7. ALEVE [Concomitant]
     Active Substance: NAPROXEN SODIUM
  8. NORTRYPTILENE [Concomitant]
  9. LORATADINE. [Concomitant]
     Active Substance: LORATADINE

REACTIONS (6)
  - Injection site mass [None]
  - Product substitution issue [None]
  - Malaise [None]
  - Abscess [None]
  - Rash [None]
  - Staphylococcal infection [None]

NARRATIVE: CASE EVENT DATE: 20180302
